FAERS Safety Report 10602231 (Version 3)
Quarter: 2015Q1

REPORT INFORMATION
  Report Type: Report from Study
  Country: US (occurrence: US)
  Receive Date: 20141124
  Receipt Date: 20150216
  Transmission Date: 20150720
  Serious: Yes (Other)
  Sender: FDA-Public Use
  Company Number: US-ABBVIE-14P-163-1311136-00

PATIENT
  Age: 34 Year
  Sex: Female

DRUGS (5)
  1. LUPRON DEPOT [Suspect]
     Active Substance: LEUPROLIDE ACETATE
     Indication: ENDOMETRIOSIS
     Route: 050
     Dates: start: 1997
  2. LUPRON DEPOT [Suspect]
     Active Substance: LEUPROLIDE ACETATE
     Route: 050
     Dates: start: 20141023
  3. MELATONIN [Concomitant]
     Active Substance: MELATONIN
     Indication: INSOMNIA
  4. CALCIUM + VITAMIN D [Concomitant]
     Active Substance: CALCIUM\VITAMIN D
     Indication: MINERAL SUPPLEMENTATION
     Dates: start: 20141023
  5. NORETHINDRONE ACETATE. [Suspect]
     Active Substance: NORETHINDRONE ACETATE
     Indication: PRODUCT USED FOR UNKNOWN INDICATION
     Route: 065
     Dates: start: 20141023

REACTIONS (21)
  - Migraine [Not Recovered/Not Resolved]
  - Loss of libido [Not Recovered/Not Resolved]
  - Abortion spontaneous [Unknown]
  - Amnesia [Not Recovered/Not Resolved]
  - Mood swings [Recovering/Resolving]
  - Polycystic ovaries [Unknown]
  - Nausea [Recovered/Resolved]
  - Menorrhagia [Recovered/Resolved]
  - Hot flush [Not Recovered/Not Resolved]
  - Pneumonia [Recovering/Resolving]
  - Paralysis [Not Recovered/Not Resolved]
  - Headache [Recovered/Resolved]
  - Constipation [Not Recovered/Not Resolved]
  - Weight increased [Unknown]
  - Sinusitis [Recovering/Resolving]
  - Drug dose omission [Unknown]
  - Night sweats [Not Recovered/Not Resolved]
  - Influenza [Recovering/Resolving]
  - Pneumothorax [Not Recovered/Not Resolved]
  - Endometriosis [Not Recovered/Not Resolved]
  - Asthenia [Recovering/Resolving]

NARRATIVE: CASE EVENT DATE: 1997
